FAERS Safety Report 10979429 (Version 3)
Quarter: 2015Q4

REPORT INFORMATION
  Report Type: Spontaneous
  Country: FR (occurrence: FR)
  Receive Date: 20150402
  Receipt Date: 20151111
  Transmission Date: 20160304
  Serious: Yes (Death, Hospitalization)
  Sender: FDA-Public Use
  Company Number: FR-PFIZER INC-2015111688

PATIENT
  Age: 66 Year
  Sex: Female

DRUGS (6)
  1. DIPROSONE /00008502/ [Concomitant]
     Active Substance: BETAMETHASONE SODIUM PHOSPHATE
     Indication: SKIN ULCER
     Dosage: UNK
     Route: 003
     Dates: start: 20150227, end: 20150304
  2. ATACAND [Concomitant]
     Active Substance: CANDESARTAN CILEXETIL
     Indication: HYPERTENSION
     Dosage: UNK
     Route: 048
     Dates: end: 20150304
  3. DALACINE [Suspect]
     Active Substance: CLINDAMYCIN HYDROCHLORIDE
     Indication: BACTERIAL DISEASE CARRIER
     Dosage: 600 MG, 3X/DAY
     Route: 048
     Dates: start: 20150227, end: 20150303
  4. VASELINE /00473501/ [Concomitant]
     Indication: SKIN ULCER
     Dosage: UNK
     Route: 003
     Dates: start: 20150227, end: 20150304
  5. CORDARONE [Concomitant]
     Active Substance: AMIODARONE HYDROCHLORIDE
     Indication: ATRIAL FIBRILLATION
     Dosage: 200 MG, 1X/DAY
     Route: 048
  6. DEXERYL /00557601/ [Concomitant]
     Active Substance: GLYCERIN\PARAFFIN
     Indication: SKIN ULCER
     Dosage: UNK
     Route: 003
     Dates: start: 20150227, end: 20150304

REACTIONS (8)
  - Rash maculo-papular [Fatal]
  - Pyrexia [Fatal]
  - Multi-organ failure [Fatal]
  - Acute respiratory failure [Fatal]
  - Dyspnoea [Fatal]
  - Shock [Fatal]
  - Leukocytosis [Unknown]
  - Pruritus [Fatal]

NARRATIVE: CASE EVENT DATE: 201503
